FAERS Safety Report 19933856 (Version 2)
Quarter: 2022Q1

REPORT INFORMATION
  Report Type: Report from Study
  Country: AU (occurrence: AU)
  Receive Date: 20211008
  Receipt Date: 20220315
  Transmission Date: 20220423
  Serious: Yes (Hospitalization, Other)
  Sender: FDA-Public Use
  Company Number: AU-BIOGEN-2021BI01025741

PATIENT
  Age: 38 Year
  Sex: Female

DRUGS (5)
  1. TECFIDERA [Suspect]
     Active Substance: DIMETHYL FUMARATE
     Indication: Multiple sclerosis
     Route: 048
     Dates: start: 20200821, end: 20210614
  2. TECFIDERA [Suspect]
     Active Substance: DIMETHYL FUMARATE
     Route: 065
     Dates: start: 20210919, end: 20210925
  3. TECFIDERA [Suspect]
     Active Substance: DIMETHYL FUMARATE
     Route: 065
  4. TECFIDERA [Suspect]
     Active Substance: DIMETHYL FUMARATE
     Route: 065
     Dates: start: 20200821
  5. THYROXINE [Concomitant]
     Active Substance: LEVOTHYROXINE
     Indication: Thyroxine decreased
     Route: 065
     Dates: start: 2020

REACTIONS (9)
  - Abortion spontaneous [Recovered/Resolved]
  - Placenta praevia [Recovered/Resolved]
  - Subchorionic haematoma [Recovered/Resolved]
  - Haemorrhage in pregnancy [Recovered/Resolved]
  - Preterm premature rupture of membranes [Recovered/Resolved]
  - Premature labour [Recovered/Resolved]
  - White blood cell count increased [Unknown]
  - Infection [Unknown]
  - Maternal exposure during pregnancy [Recovered/Resolved]

NARRATIVE: CASE EVENT DATE: 20210501
